FAERS Safety Report 8230847-5 (Version None)
Quarter: 2012Q1

REPORT INFORMATION
  Report Type: 
  Country: None (occurrence: None)
  Receive Date: 20120320
  Receipt Date: 20120305
  Transmission Date: 20120608
  Serious: Yes (Hospitalization, Disabling, Other)
  Sender: FDA-Public Use
  Company Number: GRP11000089

PATIENT
  Age: 85 Year
  Sex: Female
  Weight: 50 kg

DRUGS (6)
  1. THYRONAJOD (LEVOTHYROXINE SODIUM, POTASSIUM IODIDE) [Concomitant]
  2. ACTONEL [Suspect]
     Indication: SPINAL FRACTURE
     Dosage: ORAL
     Route: 048
     Dates: start: 20090529, end: 20110608
  3. ACTONEL [Suspect]
     Indication: OSTEOPOROSIS
     Dosage: ORAL
     Route: 048
     Dates: start: 20090529, end: 20110608
  4. RAMIPRIL [Concomitant]
  5. AMLODIPIN  /00972401/ (AMLODIPINE) [Concomitant]
  6. METOPROLOL TARTRATE [Concomitant]

REACTIONS (4)
  - PAIN [None]
  - FEMUR FRACTURE [None]
  - CONDITION AGGRAVATED [None]
  - FALL [None]
